FAERS Safety Report 15498390 (Version 1)
Quarter: 2018Q4

REPORT INFORMATION
  Report Type: Spontaneous
  Country: IN (occurrence: IN)
  Receive Date: 20181015
  Receipt Date: 20181015
  Transmission Date: 20190205
  Serious: Yes (Hospitalization, Other)
  Sender: FDA-Public Use
  Company Number: IN-ACCORD-073329

PATIENT
  Age: 50 Year
  Sex: Male

DRUGS (3)
  1. ESCITALOPRAM [Suspect]
     Active Substance: ESCITALOPRAM OXALATE
     Indication: PANIC DISORDER
  2. TELMISARTAN. [Concomitant]
     Active Substance: TELMISARTAN
  3. ACETYLSALICYLIC ACID [Concomitant]
     Active Substance: ASPIRIN

REACTIONS (7)
  - Hypertension [Unknown]
  - Hyperkalaemia [Unknown]
  - Encephalopathy [Unknown]
  - Osmotic demyelination syndrome [Unknown]
  - Bradykinesia [Unknown]
  - Hyponatraemia [Recovering/Resolving]
  - Inappropriate antidiuretic hormone secretion [Unknown]
